FAERS Safety Report 17396865 (Version 1)
Quarter: 2020Q1

REPORT INFORMATION
  Report Type: Report from Study
  Country: JP (occurrence: JP)
  Receive Date: 20200210
  Receipt Date: 20200210
  Transmission Date: 20200409
  Serious: Yes (Hospitalization, Other)
  Sender: FDA-Public Use
  Company Number: JP-ALEXION-A201815373

PATIENT

DRUGS (20)
  1. STRENSIQ [Suspect]
     Active Substance: ASFOTASE ALFA
     Indication: HYPOPHOSPHATASIA
     Dosage: 2 MG/KG, TIW
     Route: 058
     Dates: start: 20151002
  2. E KEPPRA [Concomitant]
     Active Substance: LEVETIRACETAM
     Dosage: 150 MG, BID
     Route: 048
     Dates: start: 20190109, end: 20190216
  3. E KEPPRA [Concomitant]
     Active Substance: LEVETIRACETAM
     Dosage: 225 MG, BID
     Route: 048
     Dates: start: 20190217
  4. L CARTIN FF [Concomitant]
     Active Substance: LEVOCARNITINE
     Indication: PROPHYLAXIS
     Dosage: 1 ML, TID
     Route: 048
  5. PHENOBAL                           /00023201/ [Concomitant]
     Active Substance: PHENOBARBITAL
     Dosage: 55 MG, BID
     Route: 048
     Dates: start: 20180802, end: 20180809
  6. E KEPPRA [Concomitant]
     Active Substance: LEVETIRACETAM
     Indication: HYPOPHOSPHATASIA
     Dosage: 50 UNK, UNK
     Route: 048
  7. E KEPPRA [Concomitant]
     Active Substance: LEVETIRACETAM
     Dosage: 110 MG, BID
     Route: 048
     Dates: start: 20180802, end: 20190108
  8. PHENOBAL                           /00023201/ [Concomitant]
     Active Substance: PHENOBARBITAL
     Dosage: 27.5 MG, BID
     Route: 048
     Dates: start: 20180809, end: 20180819
  9. ALFAROL [Concomitant]
     Active Substance: ALFACALCIDOL
     Dosage: 1 ML, QD
     Route: 048
     Dates: start: 20181005, end: 20181115
  10. PYRIDOXINE [Concomitant]
     Active Substance: PYRIDOXINE
     Indication: HYPOPHOSPHATASIA
     Dosage: 225 MG, BID
     Route: 048
     Dates: end: 20190120
  11. PHENOBAL                           /00023201/ [Concomitant]
     Active Substance: PHENOBARBITAL
     Indication: HYPOPHOSPHATASIA
     Dosage: UNK
     Route: 048
  12. PHENOBAL                           /00023201/ [Concomitant]
     Active Substance: PHENOBARBITAL
     Dosage: 44 MG, BID
     Route: 048
     Dates: start: 20180817, end: 20190215
  13. ALFAROL [Concomitant]
     Active Substance: ALFACALCIDOL
     Indication: HYPOPHOSPHATASIA
     Dosage: 1 ML, QD
     Route: 048
     Dates: end: 20180912
  14. MUCOSAL                            /00082801/ [Concomitant]
     Indication: PROPHYLAXIS
     Dosage: 4.5 MG, BID
     Route: 048
  15. PHENOBAL                           /00023201/ [Concomitant]
     Active Substance: PHENOBARBITAL
     Dosage: 45 MG, BID
     Route: 048
     Dates: start: 20190216
  16. CARBOCISTEINE [Concomitant]
     Active Substance: CARBOCYSTEINE
     Indication: PROPHYLAXIS
     Dosage: 100 MG, TID
     Route: 048
  17. E KEPPRA [Concomitant]
     Active Substance: LEVETIRACETAM
     Dosage: 50 MG, BID
     Route: 048
     Dates: start: 20180802, end: 20180816
  18. ALFAROL [Concomitant]
     Active Substance: ALFACALCIDOL
     Dosage: 2 ML, QD
     Route: 048
     Dates: start: 20180913, end: 20181004
  19. RIVOTRIL [Concomitant]
     Active Substance: CLONAZEPAM
     Indication: HYPOPHOSPHATASIA
     Route: 048
  20. RIVOTRIL [Concomitant]
     Active Substance: CLONAZEPAM
     Dosage: 2.5 MG, BID
     Route: 048
     Dates: start: 20180802

REACTIONS (4)
  - Feeling hot [Recovered/Resolved]
  - Pneumonia [Recovered/Resolved]
  - Induration [Recovered/Resolved]
  - Injection site erythema [Recovered/Resolved]

NARRATIVE: CASE EVENT DATE: 20181029
